FAERS Safety Report 12676138 (Version 1)
Quarter: 2016Q3

REPORT INFORMATION
  Report Type: Spontaneous
  Country: JP (occurrence: JP)
  Receive Date: 20160823
  Receipt Date: 20160823
  Transmission Date: 20161109
  Serious: Yes (Hospitalization)
  Sender: FDA-Public Use
  Company Number: PHJP2016JP021862

PATIENT

DRUGS (1)
  1. LAMISIL TAB [Suspect]
     Active Substance: TERBINAFINE HYDROCHLORIDE
     Indication: DERMATOPHYTOSIS OF NAIL
     Dosage: 125 MG, QD
     Route: 048
     Dates: end: 20160801

REACTIONS (1)
  - Concomitant disease aggravated [Unknown]
